FAERS Safety Report 7031415-3 (Version None)
Quarter: 2010Q4

REPORT INFORMATION
  Report Type: 
  Country: None (occurrence: None)
  Receive Date: 20101006
  Receipt Date: 20100924
  Transmission Date: 20110411
  Serious: Yes (Hospitalization)
  Sender: FDA-Public Use
  Company Number: US-WATSON-2010-13112

PATIENT
  Age: 59 Year
  Sex: Female

DRUGS (2)
  1. FORTAMET [Suspect]
     Indication: TYPE 2 DIABETES MELLITUS
     Dosage: UNK
     Route: 048
  2. CIMETIDINE [Suspect]
     Indication: GASTROOESOPHAGEAL REFLUX DISEASE

REACTIONS (4)
  - DRUG INTERACTION [None]
  - LACTIC ACIDOSIS [None]
  - PANCREATITIS ACUTE [None]
  - RENAL FAILURE ACUTE [None]
